FAERS Safety Report 18772790 (Version 2)
Quarter: 2021Q2

REPORT INFORMATION
  Report Type: Report from Study
  Country: DE (occurrence: DE)
  Receive Date: 20210122
  Receipt Date: 20210624
  Transmission Date: 20210717
  Serious: Yes (Hospitalization)
  Sender: FDA-Public Use
  Company Number: NVSC2021DE009030

PATIENT
  Sex: Female

DRUGS (5)
  1. DRONABINOL. [Concomitant]
     Active Substance: DRONABINOL
     Indication: PRODUCT USED FOR UNKNOWN INDICATION
     Dosage: UNK
     Route: 065
     Dates: start: 20191128
  2. COSENTYX [Suspect]
     Active Substance: SECUKINUMAB
     Indication: AXIAL SPONDYLOARTHRITIS
     Dosage: 150 MG, QW (LOADING DOSES ONCE/ WEEK, THEN EVERY 4 WEEKS)
     Route: 065
     Dates: start: 20190314, end: 20201113
  3. LOSARTAN. [Concomitant]
     Active Substance: LOSARTAN
     Indication: PRODUCT USE IN UNAPPROVED INDICATION
     Dosage: 50 MG, UNKNOWN
     Route: 065
  4. COSENTYX [Suspect]
     Active Substance: SECUKINUMAB
     Dosage: 150 MG, QMO
     Route: 065
     Dates: start: 20201213
  5. PREDNISOLON [Concomitant]
     Active Substance: PREDNISOLONE
     Indication: PRODUCT USE IN UNAPPROVED INDICATION
     Dosage: 5 MG, UNKNOWN
     Route: 065
     Dates: start: 20160229

REACTIONS (6)
  - Nocturia [Unknown]
  - Dysuria [Unknown]
  - Escherichia urinary tract infection [Unknown]
  - Micturition urgency [Unknown]
  - Reduced bladder capacity [Unknown]
  - Pollakiuria [Unknown]

NARRATIVE: CASE EVENT DATE: 20201116
